FAERS Safety Report 5400243-4 (Version None)
Quarter: 2007Q3

REPORT INFORMATION
  Report Type: 
  Country: None (occurrence: None)
  Receive Date: 20070730
  Receipt Date: 20070718
  Transmission Date: 20080115
  Serious: Yes (Other)
  Sender: FDA-Public Use
  Company Number: US-ROCHE-450690

PATIENT
  Age: 17 Year
  Sex: Male
  Weight: 74.8 kg

DRUGS (3)
  1. ACCUTANE [Suspect]
     Indication: ACNE
     Dosage: ALTERNATING 40 MG DAILY AND 80 MG DAILY.
     Route: 048
     Dates: start: 20001016, end: 20010403
  2. ACCUTANE [Suspect]
     Route: 048
     Dates: start: 20000913, end: 20001016
  3. ACCUTANE [Suspect]
     Route: 048
     Dates: start: 20010901, end: 20020301

REACTIONS (3)
  - COLITIS ULCERATIVE [None]
  - IRRITABLE BOWEL SYNDROME [None]
  - POLYP [None]
